FAERS Safety Report 23963666 (Version 1)
Quarter: 2024Q2

REPORT INFORMATION
  Report Type: Spontaneous
  Country: US (occurrence: US)
  Receive Date: 20240611
  Receipt Date: 20240611
  Transmission Date: 20240716
  Serious: No
  Sender: FDA-Public Use
  Company Number: US-PFIZER INC-202400189662

PATIENT
  Age: 56 Year
  Sex: Female

DRUGS (1)
  1. OXBRYTA [Suspect]
     Active Substance: VOXELOTOR
     Dosage: 500MG 3 TABLETS ONCE DAILY
     Route: 048
     Dates: start: 202010

REACTIONS (1)
  - Nausea [Recovered/Resolved]
